FAERS Safety Report 16340526 (Version 1)
Quarter: 2019Q2

REPORT INFORMATION
  Report Type: Spontaneous
  Country: CA (occurrence: CA)
  Receive Date: 20190522
  Receipt Date: 20190522
  Transmission Date: 20190711
  Serious: Yes (Death, Other)
  Sender: FDA-Public Use
  Company Number: CA-AUROBINDO-AUR-APL-2019-027487

PATIENT

DRUGS (3)
  1. QUETIAPINE FILM-COATED TABLET [Suspect]
     Active Substance: QUETIAPINE
     Indication: RESTLESSNESS
     Dosage: UNK
     Route: 065
  2. RISEDRONATE SODIUM. [Suspect]
     Active Substance: RISEDRONATE SODIUM
     Indication: RESTLESSNESS
     Dosage: UNK
     Route: 065
  3. HALOPERIDOL. [Suspect]
     Active Substance: HALOPERIDOL
     Indication: RESTLESSNESS
     Dosage: UNK
     Route: 065

REACTIONS (9)
  - General physical health deterioration [Fatal]
  - Speech disorder [Fatal]
  - Blood pressure decreased [Fatal]
  - Renal disorder [Fatal]
  - Musculoskeletal stiffness [Fatal]
  - Confusional state [Fatal]
  - Swelling [Fatal]
  - Off label use [Fatal]
  - Muscle spasms [Fatal]
